FAERS Safety Report 8169363-8 (Version None)
Quarter: 2012Q1

REPORT INFORMATION
  Report Type: 
  Country: None (occurrence: None)
  Receive Date: 20120222
  Receipt Date: 20120210
  Transmission Date: 20120608
  Serious: Yes (Death, Hospitalization)
  Sender: FDA-Public Use
  Company Number: 1116203

PATIENT
  Age: 77 Year
  Sex: Female
  Weight: 24.9478 kg

DRUGS (10)
  1. SIMVASTATIN [Concomitant]
  2. HYDROXYCHLOROQUINE SULFATE [Concomitant]
  3. METHOTREXATE [Suspect]
     Indication: RHEUMATOID ARTHRITIS
     Dosage: 20 MG MILLIGRAM(S), SUBCUTANEOUS
     Route: 058
     Dates: end: 20111103
  4. PROLIA [Suspect]
     Indication: OSTEOPENIA
     Dosage: 60 MG MILLIGRAM(S), SUBCUTANEOUS
     Route: 058
     Dates: start: 20110812
  5. ALENDRONATE SODIUM [Concomitant]
  6. METFORMIN HCL [Concomitant]
  7. OMEPRAZOLE [Concomitant]
  8. ADCAL [Concomitant]
  9. FOLIC ACID [Concomitant]
  10. RAMIPRIL [Concomitant]

REACTIONS (6)
  - NEUTROPENIA [None]
  - HAEMOGLOBIN DECREASED [None]
  - STENOTROPHOMONAS INFECTION [None]
  - PLATELET COUNT DECREASED [None]
  - EYELID INFECTION [None]
  - PNEUMONIA [None]
